FAERS Safety Report 16230481 (Version 1)
Quarter: 2019Q2

REPORT INFORMATION
  Report Type: Spontaneous
  Country: CH (occurrence: CH)
  Receive Date: 20190423
  Receipt Date: 20190423
  Transmission Date: 20190711
  Serious: Yes (Other)
  Sender: FDA-Public Use
  Company Number: CH-TAKEDA-2019TUS024962

PATIENT
  Age: 48 Year

DRUGS (1)
  1. VELCADE [Suspect]
     Active Substance: BORTEZOMIB
     Indication: PLASMA CELL LEUKAEMIA
     Dosage: UNK
     Route: 065

REACTIONS (3)
  - Leukaemia cutis [Unknown]
  - Product use in unapproved indication [Unknown]
  - Off label use [Unknown]
